FAERS Safety Report 6988262-8 (Version None)
Quarter: 2010Q3

REPORT INFORMATION
  Report Type: 
  Country: None (occurrence: None)
  Receive Date: 20100914
  Receipt Date: 20100830
  Transmission Date: 20110219
  Serious: Yes (Other)
  Sender: FDA-Public Use
  Company Number: CA-003553

PATIENT
  Age: 13 Year
  Sex: Male

DRUGS (1)
  1. ZOMACTON (ZOMACTON) (0.18 MG/KG, 0.24 MG/KG) (NOT SPECIFIED) [Suspect]
     Indication: GROWTH HORMONE DEFICIENCY

REACTIONS (3)
  - BLOOD ALBUMIN DECREASED [None]
  - OEDEMA [None]
  - PROTEIN TOTAL DECREASED [None]
